FAERS Safety Report 9967737 (Version 3)
Quarter: 2014Q2

REPORT INFORMATION
  Report Type: Spontaneous
  Country: ES (occurrence: ES)
  Receive Date: 20140306
  Receipt Date: 20140407
  Transmission Date: 20141212
  Serious: Yes (Death, Hospitalization, Other)
  Sender: FDA-Public Use
  Company Number: ES-AMGEN-ESPSP2014015655

PATIENT
  Age: 83 Year
  Sex: Female

DRUGS (3)
  1. VECTIBIX [Suspect]
     Indication: PRODUCT USED FOR UNKNOWN INDICATION
     Dosage: 360 UNK, Q14D
     Route: 042
  2. VECTIBIX [Suspect]
     Dosage: 300 UNK, Q14D
     Route: 042
  3. IRINOTECAN [Suspect]
     Indication: PRODUCT USED FOR UNKNOWN INDICATION
     Dosage: UNK
     Route: 065

REACTIONS (5)
  - Cardiac failure congestive [Fatal]
  - Atrial fibrillation [Fatal]
  - General physical health deterioration [Unknown]
  - Pulmonary embolism [Fatal]
  - Decreased appetite [Unknown]
